FAERS Safety Report 11895950 (Version 3)
Quarter: 2016Q1

REPORT INFORMATION
  Report Type: Spontaneous
  Country: JP (occurrence: JP)
  Receive Date: 20160107
  Receipt Date: 20160126
  Transmission Date: 20160526
  Serious: Yes (Hospitalization, Other)
  Sender: FDA-Public Use
  Company Number: JP-PFIZER INC-2016000279

PATIENT
  Age: 84 Year
  Sex: Male
  Weight: 62 kg

DRUGS (5)
  1. PREDNISOLONE. [Suspect]
     Active Substance: PREDNISOLONE
     Indication: DIFFUSE LARGE B-CELL LYMPHOMA STAGE III
     Dosage: 40 MG/M2, CYCLIC ON DAYS 1-5, ON A 21 DAY SCHEDULE
     Route: 048
  2. DOXORUBICIN [Suspect]
     Active Substance: DOXORUBICIN
     Indication: DIFFUSE LARGE B-CELL LYMPHOMA STAGE III
     Dosage: 40 MG/M2, CYCLIC ON DAYS 1-5, ON A 21 DAY SCHEDULE
     Route: 041
  3. CYCLOPHOSPHAMIDE. [Suspect]
     Active Substance: CYCLOPHOSPHAMIDE
     Indication: DIFFUSE LARGE B-CELL LYMPHOMA STAGE III
     Dosage: 600 MG/M2, CYCLIC ON DAYS 1-5, ON A 21 DAY SCHEDULE
     Route: 041
  4. VINCRISTINE [Suspect]
     Active Substance: VINCRISTINE
     Indication: DIFFUSE LARGE B-CELL LYMPHOMA STAGE III
     Dosage: 1.1 MG/M2, CYCLIC ON DAYS 1-5, ON A 21 DAY SCHEDULE
     Route: 041
  5. RITUXIMAB [Suspect]
     Active Substance: RITUXIMAB
     Indication: DIFFUSE LARGE B-CELL LYMPHOMA STAGE III
     Dosage: 375 MG/M2, CYCLIC ON DAYS 1-5, ON A 21 DAY SCHEDULE
     Route: 041

REACTIONS (3)
  - Second primary malignancy [Recovered/Resolved]
  - Kaposi^s sarcoma [Recovered/Resolved]
  - Pneumonia cytomegaloviral [Recovered/Resolved]

NARRATIVE: CASE EVENT DATE: 201404
